FAERS Safety Report 25960485 (Version 1)
Quarter: 2025Q4

REPORT INFORMATION
  Report Type: Spontaneous
  Country: US (occurrence: US)
  Receive Date: 20251027
  Receipt Date: 20251027
  Transmission Date: 20260118
  Serious: No
  Sender: NOVAST LABORATORIES LTD
  Company Number: US-NOVAST LABORATORIES INC.-2025NOV000266

PATIENT

DRUGS (1)
  1. DEBLITANE [Suspect]
     Active Substance: NORETHINDRONE
     Indication: Product used for unknown indication
     Route: 048

REACTIONS (1)
  - Anxiety [Unknown]
